FAERS Safety Report 10699844 (Version 1)
Quarter: 2015Q1

REPORT INFORMATION
  Report Type: Other
  Country: US (occurrence: US)
  Receive Date: 20150109
  Receipt Date: 20150109
  Transmission Date: 20150721
  Serious: Yes (Other)
  Sender: FDA-Public Use
  Company Number: US-ENDO PHARMACEUTICALS INC-FORT20150001

PATIENT
  Age: 40 Year
  Sex: Male

DRUGS (2)
  1. FORTESTA [Suspect]
     Active Substance: TESTOSTERONE
     Indication: ANDROGEN DEFICIENCY
     Route: 061
  2. TESTOSTERONE. [Suspect]
     Active Substance: TESTOSTERONE
     Indication: ANDROGEN DEFICIENCY
     Route: 065

REACTIONS (5)
  - Agitation [Recovered/Resolved]
  - Paranoia [Recovered/Resolved]
  - Akathisia [Recovered/Resolved]
  - Cognitive disorder [Recovered/Resolved]
  - Blood pressure increased [Recovered/Resolved]
